FAERS Safety Report 9162112 (Version 2)
Quarter: 2013Q3

REPORT INFORMATION
  Report Type: Spontaneous
  Country: AU (occurrence: None)
  Receive Date: 20130220
  Receipt Date: 20130703
  Transmission Date: 20140515
  Serious: Yes (Death)
  Sender: FDA-Public Use
  Company Number: SP06405

PATIENT
  Age: 76 Year
  Sex: Male

DRUGS (2)
  1. MOVIPREP [Suspect]
     Indication: BOWEL PREPARATION
     Dosage: (2 LIT), ORAL
     Route: 048
  2. FLEET PHOSPHO-SODA [Suspect]
     Indication: BOWEL PREPARATION
     Dosage: ( 45 ML), ORAL
     Route: 048

REACTIONS (3)
  - Myocardial infarction [None]
  - Arrhythmia [None]
  - Cardiac failure [None]
